FAERS Safety Report 17768185 (Version 2)
Quarter: 2020Q2

REPORT INFORMATION
  Report Type: Report from Study
  Country: None (occurrence: US)
  Receive Date: 20200511
  Receipt Date: 20200528
  Transmission Date: 20200714
  Serious: Yes (Other)
  Sender: FDA-Public Use
  Company Number: US-ABBVIE-20K-163-3398432-00

PATIENT
  Age: 26 Year
  Sex: Female
  Weight: 113.5 kg

DRUGS (1)
  1. HUMIRA [Suspect]
     Active Substance: ADALIMUMAB
     Indication: HIDRADENITIS
     Route: 058
     Dates: start: 2019

REACTIONS (3)
  - Hysterectomy [Recovering/Resolving]
  - Haemorrhage [Recovering/Resolving]
  - Dysplasia [Recovering/Resolving]

NARRATIVE: CASE EVENT DATE: 201908
